FAERS Safety Report 5720556-6 (Version None)
Quarter: 2008Q2

REPORT INFORMATION
  Report Type: 
  Country: None (occurrence: None)
  Receive Date: 20080424
  Receipt Date: 20080424
  Transmission Date: 20081010
  Serious: Yes (Hospitalization)
  Sender: FDA-Public Use
  Company Number: None

PATIENT
  Age: 48 Year
  Sex: Male
  Weight: 84.5 kg

DRUGS (1)
  1. PENICILLIN [Suspect]
     Indication: INFECTION
     Dosage: 250 MG  TID  PO
     Route: 048
     Dates: start: 20080415, end: 20080418

REACTIONS (2)
  - ANGIOEDEMA [None]
  - DRUG HYPERSENSITIVITY [None]
